FAERS Safety Report 9280024 (Version 1)
Quarter: 2013Q2

REPORT INFORMATION
  Report Type: Spontaneous
  Country: KR (occurrence: KR)
  Receive Date: 20130509
  Receipt Date: 20130509
  Transmission Date: 20140414
  Serious: Yes (Other)
  Sender: FDA-Public Use
  Company Number: KR-ROCHE-1221406

PATIENT
  Age: 26 Year
  Sex: Female

DRUGS (1)
  1. CEFTRIAXONE [Suspect]
     Indication: OSTEOMYELITIS CHRONIC
     Route: 042

REACTIONS (2)
  - Retinal vasculitis [Unknown]
  - Anaphylactoid reaction [Unknown]
